FAERS Safety Report 8010764-6 (Version None)
Quarter: 2011Q4

REPORT INFORMATION
  Report Type: 
  Country: None (occurrence: None)
  Receive Date: 20111222
  Receipt Date: 20111209
  Transmission Date: 20120403
  Serious: Yes (Other)
  Sender: FDA-Public Use
  Company Number: MC201000392

PATIENT
  Age: 68 Year
  Sex: Female
  Weight: 78 kg

DRUGS (2)
  1. ANGIOMAX [Suspect]
     Indication: PERCUTANEOUS CORONARY INTERVENTION
     Dosage: 12 ML, BOLUS, INTRAVENOUS ; 28 ML, HR, INTRAVENOUS
     Route: 042
     Dates: start: 20101202, end: 20101202
  2. ANGIOMAX [Suspect]
     Indication: PERCUTANEOUS CORONARY INTERVENTION
     Dosage: 12 ML, BOLUS, INTRAVENOUS ; 28 ML, HR, INTRAVENOUS
     Route: 042
     Dates: start: 20101202, end: 20101202

REACTIONS (3)
  - PROCEDURAL COMPLICATION [None]
  - CORONARY ARTERY PERFORATION [None]
  - INTERNATIONAL NORMALISED RATIO INCREASED [None]
